FAERS Safety Report 6210680-6 (Version None)
Quarter: 2009Q2

REPORT INFORMATION
  Report Type: 
  Country: None (occurrence: None)
  Receive Date: 20090601
  Receipt Date: 20090525
  Transmission Date: 20091009
  Serious: Yes (Death)
  Sender: FDA-Public Use
  Company Number: AU-AVENTIS-200912564EU

PATIENT
  Age: 74 Year
  Sex: Female

DRUGS (5)
  1. RILUTEK [Suspect]
     Dates: start: 20081231, end: 20090503
  2. LYRICA [Concomitant]
  3. ACETAMINOPHEN [Concomitant]
  4. OXYCONTIN [Concomitant]
  5. PRAMIN                             /00041901/ [Concomitant]

REACTIONS (1)
  - MYOCARDIAL INFARCTION [None]
